FAERS Safety Report 15907740 (Version 1)
Quarter: 2019Q1

REPORT INFORMATION
  Report Type: Spontaneous
  Country: FR (occurrence: FR)
  Receive Date: 20190204
  Receipt Date: 20190204
  Transmission Date: 20190417
  Serious: Yes (Hospitalization)
  Sender: FDA-Public Use
  Company Number: FR-NAPPMUNDI-GBR-2019-0063796

PATIENT
  Age: 63 Year
  Sex: Female
  Weight: 92 kg

DRUGS (10)
  1. PROFENID [Suspect]
     Active Substance: KETOPROFEN
     Indication: PAIN
     Dosage: 400 MG, DAILY
     Route: 042
     Dates: start: 20181121, end: 20181122
  2. LEVOTHYROX [Concomitant]
     Active Substance: LEVOTHYROXINE
  3. COTAREG [Suspect]
     Active Substance: HYDROCHLOROTHIAZIDE\VALSARTAN
     Indication: HYPERTENSION
     Dosage: 1 DF, DAILY
     Route: 048
     Dates: end: 20181121
  4. MORPHINE HYDROCHLORIDE [Suspect]
     Active Substance: MORPHINE HYDROCHLORIDE
     Indication: PAIN
     Dosage: 1 DF, DAILY
     Route: 042
     Dates: start: 20181121, end: 20181123
  5. SEVREDOL [Suspect]
     Active Substance: MORPHINE
     Indication: PAIN
     Dosage: 4 DF, DAILY (STRENGHT 10MG)
     Route: 048
     Dates: start: 20181121, end: 20181124
  6. LOVENOX [Concomitant]
     Active Substance: ENOXAPARIN SODIUM
  7. PARACETAMOL [Concomitant]
     Active Substance: ACETAMINOPHEN
  8. MOSCONTIN [Suspect]
     Active Substance: MORPHINE SULFATE
     Indication: PAIN
     Dosage: 2 DF, DAILY (STRENGHT 30MG)
     Route: 048
     Dates: start: 20181121, end: 20181124
  9. BIPROFENID [Suspect]
     Active Substance: KETOPROFEN
     Indication: PAIN
     Dosage: 2 DF, DAILY
     Route: 048
     Dates: start: 20181122, end: 20181124
  10. RIVOTRIL [Suspect]
     Active Substance: CLONAZEPAM
     Indication: AGITATION
     Dosage: 8 DROP, DAILY
     Route: 048
     Dates: start: 20181121, end: 20181123

REACTIONS (1)
  - Acute kidney injury [Recovered/Resolved]

NARRATIVE: CASE EVENT DATE: 20181124
